FAERS Safety Report 4548108-4 (Version None)
Quarter: 2005Q1

REPORT INFORMATION
  Report Type: 
  Country: None (occurrence: None)
  Receive Date: 20050105
  Receipt Date: 20050105
  Transmission Date: 20050727
  Serious: Yes (Other)
  Sender: FDA-Public Use
  Company Number: None

PATIENT
  Age: 49 Year
  Sex: Female
  Weight: 75.7507 kg

DRUGS (1)
  1. EQUATE NASAL SPRAY 12-HOUR SPRAY PERRIGO [Suspect]
     Indication: SINUSITIS
     Dosage: TWO SPRAYS NASAL
     Route: 045
     Dates: start: 20040101, end: 20040105

REACTIONS (9)
  - BURNING SENSATION [None]
  - EYE IRRITATION [None]
  - FACIAL PAIN [None]
  - FLUSHING [None]
  - NASAL DISCOMFORT [None]
  - PAIN [None]
  - PHARMACEUTICAL PRODUCT COMPLAINT [None]
  - SINUS DISORDER [None]
  - SWELLING FACE [None]
